FAERS Safety Report 23830495 (Version 1)
Quarter: 2024Q2

REPORT INFORMATION
  Report Type: Spontaneous
  Country: DE (occurrence: DE)
  Receive Date: 20240508
  Receipt Date: 20240508
  Transmission Date: 20240715
  Serious: Yes (Hospitalization, Other)
  Sender: FDA-Public Use
  Company Number: DE-SCHWARZ-013#0#2008-00104

PATIENT
  Age: 21 Year
  Sex: Male
  Weight: 90 kg

DRUGS (10)
  1. DOXYCYCLINE HYCLATE [Suspect]
     Active Substance: DOXYCYCLINE HYCLATE
     Dosage: 900 MG
     Route: 048
     Dates: start: 20081011
  2. CITALOPRAM [Suspect]
     Active Substance: CITALOPRAM\CITALOPRAM HYDROBROMIDE
     Dosage: 300 MG (30 TABLETS)
     Route: 048
     Dates: start: 20081011
  3. FERROUS GLUCONATE [Suspect]
     Active Substance: FERROUS GLUCONATE
     Dosage: 200 MG (20 TABLETS)
     Route: 048
     Dates: start: 20081011
  4. AMOXICILLIN [Suspect]
     Active Substance: AMOXICILLIN
     Dosage: 750 MG, 1X/DAY (DAILY DOSE: 750 MG MILLIGRAM(S) EVERY DAY)
     Route: 048
     Dates: start: 20081011
  5. NAPROXEN [Suspect]
     Active Substance: NAPROXEN
     Dosage: 1750 MG (7 TABLETS)
     Route: 048
     Dates: start: 20081011
  6. ROXITHROMYCIN [Suspect]
     Active Substance: ROXITHROMYCIN
     Dosage: 5100 MG (17 TABLETS)
     Route: 048
     Dates: start: 20081011
  7. DICLOFENAC [Suspect]
     Active Substance: DICLOFENAC
     Dosage: 1000 MG (20 TABLETS)
     Route: 048
     Dates: start: 20081011
  8. DICLOFENAC [Suspect]
     Active Substance: DICLOFENAC
     Dosage: 750 MG (10 CAPSULES)
     Route: 048
     Dates: start: 20081011
  9. DIMENHYDRINATE [Suspect]
     Active Substance: DIMENHYDRINATE
     Dosage: 900 MG (18 TABLETS)
     Route: 048
     Dates: start: 20081011
  10. CEFACLOR [Suspect]
     Active Substance: CEFACLOR
     Dosage: 2500 MG (5 TABLETS)
     Route: 048
     Dates: start: 20081011

REACTIONS (4)
  - Suicide attempt [Recovered/Resolved]
  - Overdose [Recovered/Resolved]
  - Somnolence [Recovered/Resolved]
  - Vomiting [Recovered/Resolved]

NARRATIVE: CASE EVENT DATE: 20081011
